FAERS Safety Report 9517051 (Version 1)
Quarter: 2013Q3

REPORT INFORMATION
  Report Type: Spontaneous
  Country: US (occurrence: US)
  Receive Date: 20130911
  Receipt Date: 20130911
  Transmission Date: 20140515
  Serious: No
  Sender: FDA-Public Use
  Company Number: US-PFIZER INC-2013257872

PATIENT
  Age: 53 Year
  Sex: Male
  Weight: 117.91 kg

DRUGS (3)
  1. VIAGRA [Suspect]
     Indication: ERECTILE DYSFUNCTION
     Dosage: 50 MG, ALTERNATE DAY
     Route: 048
     Dates: start: 2012, end: 20130903
  2. VIAGRA [Suspect]
     Dosage: 100 MG, ALTERNATE DAY
     Route: 048
     Dates: start: 20130904
  3. PROVENTIL INHALER [Concomitant]
     Dosage: UNK

REACTIONS (2)
  - Drug effect incomplete [Unknown]
  - Ejaculation disorder [Unknown]
